FAERS Safety Report 6247069-X (Version None)
Quarter: 2009Q2

REPORT INFORMATION
  Report Type: 
  Country: None (occurrence: None)
  Receive Date: 20090624
  Receipt Date: 20090624
  Transmission Date: 20091009
  Serious: Yes (Hospitalization)
  Sender: FDA-Public Use
  Company Number: None

PATIENT
  Age: 69 Year
  Sex: Male

DRUGS (8)
  1. LISINOPRIL [Suspect]
     Indication: HYPERTENSION
     Dosage: PO QD
     Route: 048
  2. VALSARTAN [Suspect]
     Indication: HYPERTENSION
     Dosage: PO QD
     Route: 048
  3. CASODEX [Concomitant]
  4. TAMSULOSIN HCL [Concomitant]
  5. ATORVASTATIN CALCIUM [Concomitant]
  6. AMLODIPINE [Concomitant]
  7. ESCITALOPRAM [Concomitant]
  8. SEVELAMER [Concomitant]

REACTIONS (1)
  - ANGIOEDEMA [None]
